FAERS Safety Report 6157012-X (Version None)
Quarter: 2009Q2

REPORT INFORMATION
  Report Type: 
  Country: None (occurrence: None)
  Receive Date: 20090416
  Receipt Date: 20090407
  Transmission Date: 20091009
  Serious: Yes (Hospitalization)
  Sender: FDA-Public Use
  Company Number: FR-ASTRAZENECA-2009CG00648

PATIENT
  Age: 7386 Day
  Sex: Female

DRUGS (9)
  1. DIPRIVAN [Suspect]
     Route: 042
     Dates: start: 20090206, end: 20090206
  2. ACUPAN [Suspect]
     Route: 042
     Dates: start: 20090206, end: 20090206
  3. ACETAMINOPHEN [Suspect]
     Route: 042
     Dates: start: 20090206, end: 20090206
  4. DROLEPTAN [Suspect]
     Route: 042
     Dates: start: 20090206, end: 20090206
  5. TOPALGIC [Suspect]
     Route: 042
     Dates: start: 20090206, end: 20090206
  6. CELOCURIN [Suspect]
     Route: 042
     Dates: start: 20090206, end: 20090206
  7. SUFENTA PRESERVATIVE FREE [Suspect]
     Route: 042
     Dates: start: 20090206, end: 20090206
  8. DEXAMETHASONE 4MG TAB [Suspect]
     Route: 042
     Dates: start: 20090206, end: 20090206
  9. DALACINE [Suspect]
     Route: 042
     Dates: start: 20090206, end: 20090206

REACTIONS (6)
  - ABDOMINAL PAIN [None]
  - HYPERHIDROSIS [None]
  - HYPOTENSION [None]
  - MALAISE [None]
  - PALLOR [None]
  - TACHYCARDIA [None]
